FAERS Safety Report 9149363 (Version 1)
Quarter: 2013Q1

REPORT INFORMATION
  Report Type: Spontaneous
  Country: US (occurrence: US)
  Receive Date: 20130308
  Receipt Date: 20130308
  Transmission Date: 20140127
  Serious: No
  Sender: FDA-Public Use
  Company Number: US-PFIZER INC-2013080310

PATIENT
  Age: 50 Year
  Sex: Female
  Weight: 68.03 kg

DRUGS (3)
  1. LYRICA [Suspect]
     Indication: NEUROPATHY PERIPHERAL
     Dosage: 300 MG, 2X/DAY
     Route: 048
     Dates: start: 2009
  2. LYRICA [Suspect]
     Dosage: 150 MG, 2X/DAY
     Route: 048
  3. LEXAPRO [Concomitant]
     Dosage: UNK

REACTIONS (1)
  - Drug ineffective [Unknown]
